FAERS Safety Report 16727637 (Version 2)
Quarter: 2020Q3

REPORT INFORMATION
  Report Type: Spontaneous
  Country: IE (occurrence: IE)
  Receive Date: 20190822
  Receipt Date: 20200731
  Transmission Date: 20201102
  Serious: Yes (Congenital Anomaly, Other)
  Sender: FDA-Public Use
  Company Number: IE-SUN PHARMACEUTICAL INDUSTRIES LTD-2019R1-217330

PATIENT
  Sex: Male
  Weight: 3.1 kg

DRUGS (1)
  1. FOLIC ACID. [Suspect]
     Active Substance: FOLIC ACID
     Indication: PRODUCT USED FOR UNKNOWN INDICATION
     Dosage: UNK
     Route: 064

REACTIONS (4)
  - Drug ineffective [Unknown]
  - Premature delivery [Unknown]
  - Spina bifida [Recovering/Resolving]
  - Exposure during pregnancy [Unknown]
